FAERS Safety Report 4286329-9 (Version None)
Quarter: 2004Q1

REPORT INFORMATION
  Report Type: 
  Country: None (occurrence: None)
  Receive Date: 20040121
  Receipt Date: 20030311
  Transmission Date: 20041129
  Serious: Yes (Other)
  Sender: FDA-Public Use
  Company Number: A03200300513

PATIENT
  Age: 72 Year
  Sex: Male
  Weight: 80.7403 kg

DRUGS (10)
  1. PLAVIX [Suspect]
     Indication: MYOCARDIAL INFARCTION
     Dosage: 75 MG QD - ORAL
     Route: 048
     Dates: start: 19990101, end: 20020101
  2. PLAVIX [Suspect]
     Indication: STENT PLACEMENT
     Dosage: 75 MG QD - ORAL
     Route: 048
     Dates: start: 19990101, end: 20020101
  3. AMIODARONE [Concomitant]
  4. DIGOXIN [Concomitant]
  5. LISINOPRIL [Concomitant]
  6. ACETYLSALICYLIC ACID SRT [Concomitant]
  7. TRIAMTERENE AND HYDROCHLOROTHIAZIDE [Concomitant]
  8. RANITIDINE [Concomitant]
  9. MULITIVITAMINS [Concomitant]
  10. LUTEINE [Concomitant]

REACTIONS (4)
  - CONTUSION [None]
  - GASTROINTESTINAL ULCER HAEMORRHAGE [None]
  - HAEMATOMA [None]
  - HAEMORRHAGIC DIATHESIS [None]
